FAERS Safety Report 9548056 (Version 1)
Quarter: 2013Q3

REPORT INFORMATION
  Report Type: Spontaneous
  Country: US (occurrence: US)
  Receive Date: 20130924
  Receipt Date: 20130924
  Transmission Date: 20140515
  Serious: No
  Sender: FDA-Public Use
  Company Number: US-PURDUE-USA-2011-0072854

PATIENT
  Sex: Male

DRUGS (1)
  1. MORPHINE SULFATE EXTENDED-RELEASE TABLETS (RHODES 74-769) [Suspect]
     Indication: PAIN
     Dosage: 800 MG, BID
     Route: 048

REACTIONS (1)
  - Inadequate analgesia [Unknown]
